FAERS Safety Report 24403884 (Version 1)
Quarter: 2024Q4

REPORT INFORMATION
  Report Type: Spontaneous
  Country: IN (occurrence: IN)
  Receive Date: 20241007
  Receipt Date: 20241007
  Transmission Date: 20250115
  Serious: Yes (Hospitalization, Other)
  Sender: GLAXOSMITHKLINE
  Company Number: IN-GSK-IN2024GSK119016

PATIENT

DRUGS (4)
  1. DOLUTEGRAVIR [Suspect]
     Active Substance: DOLUTEGRAVIR
     Indication: HIV infection
     Dosage: 50 MG
  2. LAMIVUDINE [Suspect]
     Active Substance: LAMIVUDINE
     Indication: HIV infection
     Dosage: 300 MG
  3. TENOFOVIR DISOPROXIL FUMARATE [Suspect]
     Active Substance: TENOFOVIR DISOPROXIL FUMARATE
     Indication: HIV infection
     Dosage: 300 MG
  4. COTRIMOXAZOLE [Concomitant]
     Active Substance: SULFAMETHOXAZOLE\TRIMETHOPRIM
     Indication: Product used for unknown indication
     Dosage: UNK

REACTIONS (14)
  - Immune reconstitution inflammatory syndrome [Unknown]
  - Rhinitis [Recovering/Resolving]
  - Headache [Unknown]
  - Hyposmia [Unknown]
  - Nasal septum disorder [Recovering/Resolving]
  - Nasal turbinate hypertrophy [Recovering/Resolving]
  - Nasal polyps [Recovering/Resolving]
  - Sinusitis [Recovering/Resolving]
  - Mucosal hypertrophy [Recovering/Resolving]
  - Chronic sinusitis [Recovering/Resolving]
  - Nasal septum deviation [Recovering/Resolving]
  - Inflammation [Recovering/Resolving]
  - Paranasal cyst [Recovering/Resolving]
  - Staphylococcal infection [Unknown]
